FAERS Safety Report 11989511 (Version 4)
Quarter: 2017Q1

REPORT INFORMATION
  Report Type: Report from Study
  Country: DE (occurrence: DE)
  Receive Date: 20160202
  Receipt Date: 20170227
  Transmission Date: 20170428
  Serious: Yes (Death)
  Sender: FDA-Public Use
  Company Number: PHHO2015DE013125

PATIENT
  Sex: Male

DRUGS (3)
  1. PREDNISOLON [Suspect]
     Active Substance: PREDNISOLONE
     Indication: HEART TRANSPLANT
     Dosage: 7.5 UG, QD
     Route: 065
     Dates: start: 20150620
  2. EVEROLIMUS [Suspect]
     Active Substance: EVEROLIMUS
     Indication: HEART TRANSPLANT
     Dosage: 1.75 MG, QD (1-0-0.75)
     Route: 048
     Dates: start: 20150804
  3. CELLCEPT [Suspect]
     Active Substance: MYCOPHENOLATE MOFETIL\MYCOPHENOLATE MOFETIL HYDROCHLORIDE
     Indication: HEART TRANSPLANT
     Dosage: 1750 UG, BID (1000 MORNING + 750 EVENING)
     Route: 065
     Dates: start: 20150624

REACTIONS (1)
  - Heart transplant rejection [Fatal]

NARRATIVE: CASE EVENT DATE: 20150812
